FAERS Safety Report 5565863-5 (Version None)
Quarter: 2007Q4

REPORT INFORMATION
  Report Type: 
  Country: None (occurrence: None)
  Receive Date: 20071213
  Receipt Date: 20071128
  Transmission Date: 20080405
  Serious: Yes (Hospitalization)
  Sender: FDA-Public Use
  Company Number: 2007S1012453

PATIENT
  Age: 58 Year
  Sex: Female

DRUGS (1)
  1. DILTIAZEM [Suspect]
     Dosage: 8400 MG

REACTIONS (4)
  - BLOOD PRESSURE SYSTOLIC INCREASED [None]
  - CARDIOVASCULAR DISORDER [None]
  - DRUG TOXICITY [None]
  - HYPOGLYCAEMIA [None]
